FAERS Safety Report 8814105 (Version 1)
Quarter: 2012Q4

REPORT INFORMATION
  Report Type: Spontaneous
  Country: US (occurrence: None)
  Receive Date: 20120926
  Receipt Date: 20120926
  Transmission Date: 20130627
  Serious: Yes (Disabling)
  Sender: FDA-Public Use
  Company Number: None

PATIENT
  Sex: Female
  Weight: 83.92 kg

DRUGS (2)
  1. ACETAMINOPHEN\HYDROCODONE [Suspect]
     Indication: BACK PAIN
     Dates: start: 20120911
  2. ACETAMINOPHEN\HYDROCODONE [Suspect]
     Indication: BACK PAIN
     Dates: start: 20120913

REACTIONS (4)
  - Headache [None]
  - Dizziness [None]
  - Nausea [None]
  - Reaction to drug excipients [None]
